FAERS Safety Report 20039004 (Version 1)
Quarter: 2021Q4

REPORT INFORMATION
  Report Type: Spontaneous
  Country: CN (occurrence: CN)
  Receive Date: 20211105
  Receipt Date: 20211105
  Transmission Date: 20220303
  Serious: Yes (Life-Threatening, Other)
  Sender: FDA-Public Use
  Company Number: CN-BAYER-2021A241247

PATIENT
  Age: 76 Year
  Sex: Male
  Weight: 65 kg

DRUGS (3)
  1. ASPIRIN [Suspect]
     Active Substance: ASPIRIN
     Indication: Ischaemic heart disease prophylaxis
     Dosage: 0.1 G, QD
     Route: 048
     Dates: start: 20211002, end: 20211013
  2. GLUCOBAY [Suspect]
     Active Substance: ACARBOSE
     Indication: Type 2 diabetes mellitus
     Dosage: 50 MG, TID
     Route: 048
     Dates: start: 20200210, end: 20211029
  3. HERBALS [Suspect]
     Active Substance: HERBALS
     Dosage: 2 DF, TID
     Route: 048
     Dates: start: 20211002, end: 20211029

REACTIONS (5)
  - Gingival bleeding [Recovering/Resolving]
  - Platelet count decreased [Recovering/Resolving]
  - Haematemesis [Recovering/Resolving]
  - Dizziness [Recovering/Resolving]
  - Labelled drug-drug interaction medication error [None]

NARRATIVE: CASE EVENT DATE: 20211013
